FAERS Safety Report 19866467 (Version 4)
Quarter: 2021Q4

REPORT INFORMATION
  Report Type: Spontaneous
  Country: CZ (occurrence: CZ)
  Receive Date: 20210921
  Receipt Date: 20211005
  Transmission Date: 20220303
  Serious: Yes (Hospitalization, Other)
  Sender: FDA-Public Use
  Company Number: CZ-TEVA-2021-CZ-1906334

PATIENT
  Sex: Female

DRUGS (8)
  1. OLANZAPINE [Suspect]
     Active Substance: OLANZAPINE
     Indication: Schizophrenia
     Dosage: UNK
     Route: 065
  2. QUETIAPINE [Suspect]
     Active Substance: QUETIAPINE
     Indication: Schizophrenia
     Dosage: UNK
  3. ARIPIPRAZOLE [Suspect]
     Active Substance: ARIPIPRAZOLE
     Indication: Schizophrenia
     Dosage: UNK
  4. RISPERIDONE [Suspect]
     Active Substance: RISPERIDONE
     Indication: Psychotic disorder
     Dosage: 6 MILLIGRAM (UP TO A DOSE OF 6 MG)
  5. RISPERIDONE [Suspect]
     Active Substance: RISPERIDONE
     Indication: Schizophrenia
  6. RISPERDAL [Suspect]
     Active Substance: RISPERIDONE
     Indication: Schizophrenia
     Dosage: UNK
     Route: 065
  7. RISPERDAL [Suspect]
     Active Substance: RISPERIDONE
     Dosage: 6 MILLIGRAM (TRIED TO STRENGTHEN ANTIPSYCHOTIC THERAPY UP TO THE DOSE)
     Route: 065
  8. ZUCLOPENTHIXOL [Concomitant]
     Active Substance: ZUCLOPENTHIXOL
     Indication: Schizophrenia
     Dosage: TREATMENT ON LONG-TERM BASIS WITH DEPOT PRODUCT

REACTIONS (9)
  - Drug intolerance [Unknown]
  - Treatment noncompliance [Unknown]
  - Weight increased [Unknown]
  - Therapeutic product effect incomplete [Recovered/Resolved]
  - Blood prolactin increased [Unknown]
  - Cardiovascular disorder [Unknown]
  - Sexual dysfunction [Recovering/Resolving]
  - Akathisia [Recovered/Resolved]
  - Sedation [Recovered/Resolved]
